FAERS Safety Report 24626976 (Version 1)
Quarter: 2024Q4

REPORT INFORMATION
  Report Type: Report from Study
  Country: NL (occurrence: NL)
  Receive Date: 20241115
  Receipt Date: 20241115
  Transmission Date: 20250115
  Serious: Yes (Other)
  Sender: VERITY PHARMACEUTICALS INC.
  Company Number: NL-VER-202400075

PATIENT
  Age: 79 Year
  Sex: Male

DRUGS (3)
  1. TRIPTORELIN PAMOATE [Suspect]
     Active Substance: TRIPTORELIN PAMOATE
     Indication: Prostate cancer
     Dosage: (11.25 MILLIGRAM(S), IN 3 MONTH)
     Route: 030
     Dates: start: 20231025
  2. TRIPTORELIN PAMOATE [Suspect]
     Active Substance: TRIPTORELIN PAMOATE
     Indication: Prostate cancer
     Dosage: (11.25 MILLIGRAM(S), IN 3 MONTH)
     Route: 030
     Dates: start: 20240726
  3. TRIPTORELIN PAMOATE [Suspect]
     Active Substance: TRIPTORELIN PAMOATE
     Indication: Prostate cancer
     Dosage: (11.25 MILLIGRAM(S), IN 3 MONTH)
     Route: 030
     Dates: start: 20241028

REACTIONS (1)
  - Angina pectoris [Recovered/Resolved]

NARRATIVE: CASE EVENT DATE: 20240825
